FAERS Safety Report 11634014 (Version 2)
Quarter: 2015Q4

REPORT INFORMATION
  Report Type: Spontaneous
  Country: NO (occurrence: NO)
  Receive Date: 20151015
  Receipt Date: 20151023
  Transmission Date: 20160304
  Serious: Yes (Hospitalization)
  Sender: FDA-Public Use
  Company Number: NO-PFIZER INC-2015340694

PATIENT
  Age: 11 Year
  Sex: Female

DRUGS (7)
  1. RASBURICASE [Concomitant]
     Active Substance: RASBURICASE
     Indication: NON-HODGKIN^S LYMPHOMA
  2. VINCRISTINE SULFATE. [Concomitant]
     Active Substance: VINCRISTINE SULFATE
     Indication: NON-HODGKIN^S LYMPHOMA
  3. PREDNISOLONE. [Concomitant]
     Active Substance: PREDNISOLONE
     Indication: NON-HODGKIN^S LYMPHOMA
  4. FLUCONAZOLE. [Suspect]
     Active Substance: FLUCONAZOLE
     Route: 041
  5. PEG/L-ASPARAGINASE [Concomitant]
     Active Substance: PEGASPARGASE
     Indication: NON-HODGKIN^S LYMPHOMA
  6. DAUNORUBICIN [Concomitant]
     Active Substance: DAUNORUBICIN
     Indication: NON-HODGKIN^S LYMPHOMA
  7. METHOTREXATE SODIUM. [Concomitant]
     Active Substance: METHOTREXATE SODIUM
     Indication: NON-HODGKIN^S LYMPHOMA
     Route: 037

REACTIONS (1)
  - Posterior reversible encephalopathy syndrome [Recovered/Resolved]
